FAERS Safety Report 26133044 (Version 2)
Quarter: 2025Q4

REPORT INFORMATION
  Report Type: Spontaneous
  Country: US (occurrence: US)
  Receive Date: 20251209
  Receipt Date: 20251222
  Transmission Date: 20260117
  Serious: Yes (Other)
  Sender: ROCHE
  Company Number: US-ROCHE-10000450692

PATIENT
  Age: 10 Year
  Sex: Male

DRUGS (2)
  1. XOLAIR PFS [Suspect]
     Active Substance: OMALIZUMAB
     Indication: Anaphylactic reaction
     Route: 058
     Dates: start: 202503
  2. XOLAIR PFS [Suspect]
     Active Substance: OMALIZUMAB

REACTIONS (2)
  - Anaphylactic reaction [Recovered/Resolved]
  - Cold urticaria [Unknown]

NARRATIVE: CASE EVENT DATE: 20251130
